FAERS Safety Report 7333727-2 (Version None)
Quarter: 2011Q1

REPORT INFORMATION
  Report Type: 
  Country: None (occurrence: None)
  Receive Date: 20110306
  Receipt Date: 20110225
  Transmission Date: 20110831
  Serious: Yes (Hospitalization, Other)
  Sender: FDA-Public Use
  Company Number: US-BAYER-2011-017915

PATIENT
  Weight: 64 kg

DRUGS (14)
  1. ALEVE (CAPLET) [Suspect]
     Indication: TOOTHACHE
     Dosage: UNK
     Dates: start: 20090401
  2. REBIF [Concomitant]
     Dosage: DAILY DOSE 44 ?G
  3. NEURONTIN [Concomitant]
     Indication: HYPOAESTHESIA
     Dosage: UNK
  4. DDAVP [Suspect]
     Dosage: DOSE DECREASED TO HALF DOSE
     Dates: start: 20090401
  5. NEURONTIN [Concomitant]
     Indication: PARAESTHESIA
  6. ACETAMINOPHEN [Concomitant]
     Indication: UNEVALUABLE EVENT
     Dosage: UNK
  7. ASPIRIN [Concomitant]
     Indication: UNEVALUABLE EVENT
     Dosage: UNK
  8. REBIF [Concomitant]
     Indication: MULTIPLE SCLEROSIS
     Dosage: 44 ?G, TIW
     Route: 058
     Dates: start: 20040721, end: 20090401
  9. ADVIL LIQUI-GELS [Suspect]
     Indication: TOOTHACHE
     Dosage: UNK
     Dates: start: 20090401
  10. OXYBUTYNIN CHLORIDE [Concomitant]
     Indication: BLADDER DISORDER
     Dosage: UNK
  11. ENALAPRIL HCT [Suspect]
     Indication: HYPERTENSION
     Dosage: UNK
     Dates: end: 20090401
  12. DDAVP [Suspect]
     Indication: URINARY INCONTINENCE
     Dosage: UNK
     Dates: start: 20090201, end: 20090401
  13. FOSAMAX [Concomitant]
     Indication: OSTEOPOROSIS
     Dosage: UNK
  14. MACROBID [Concomitant]
     Indication: BLADDER CATHETER TEMPORARY
     Dosage: UNK

REACTIONS (3)
  - LETHARGY [None]
  - BRAIN OEDEMA [None]
  - BLOOD SODIUM DECREASED [None]
